FAERS Safety Report 8372035-8 (Version None)
Quarter: 2012Q2

REPORT INFORMATION
  Report Type: 
  Country: None (occurrence: None)
  Receive Date: 20120519
  Receipt Date: 20120515
  Transmission Date: 20120825
  Serious: Yes (Hospitalization, Other)
  Sender: FDA-Public Use
  Company Number: CA-ABBOTT-12P-028-0916932-00

PATIENT
  Sex: Male

DRUGS (1)
  1. HUMIRA [Suspect]
     Indication: CROHN'S DISEASE
     Route: 058
     Dates: start: 20110606

REACTIONS (5)
  - HAEMOGLOBIN DECREASED [None]
  - ACCIDENT [None]
  - EPISTAXIS [None]
  - HAEMORRHAGE [None]
  - RECTAL HAEMORRHAGE [None]
